FAERS Safety Report 15095843 (Version 2)
Quarter: 2019Q3

REPORT INFORMATION
  Report Type: Report from Study
  Country: None (occurrence: US)
  Receive Date: 20180702
  Receipt Date: 20190905
  Transmission Date: 20191004
  Serious: Yes (Other)
  Sender: FDA-Public Use
  Company Number: US-ABBVIE-18K-163-2259438-00

PATIENT
  Age: 45 Year
  Sex: Female

DRUGS (1)
  1. HUMIRA [Suspect]
     Active Substance: ADALIMUMAB
     Indication: RHEUMATOID ARTHRITIS
     Route: 058

REACTIONS (9)
  - Diverticulum oesophageal [Recovered/Resolved]
  - Clostridium difficile infection [Unknown]
  - Bone pain [Recovering/Resolving]
  - Wrist surgery [Recovered/Resolved]
  - Mobility decreased [Unknown]
  - Dehydration [Unknown]
  - Bronchitis [Unknown]
  - Cellulitis [Recovering/Resolving]
  - Myasthenia gravis [Unknown]

NARRATIVE: CASE EVENT DATE: 20180123
